FAERS Safety Report 5368358-7 (Version None)
Quarter: 2007Q2

REPORT INFORMATION
  Report Type: 
  Country: None (occurrence: None)
  Receive Date: 20070615
  Receipt Date: 20070604
  Transmission Date: 20071010
  Serious: Yes (Hospitalization)
  Sender: FDA-Public Use
  Company Number: WAES 0706USA01091

PATIENT
  Age: 64 Year
  Sex: Male
  Weight: 56.6996 kg

DRUGS (4)
  1. CAP VORINOSTAT UNK [Suspect]
     Indication: GASTRIC CANCER
     Dosage: 300 MG/BID/PO
     Route: 048
     Dates: start: 20070206, end: 20070214
  2. CAP VORINOSTAT UNK [Suspect]
     Indication: GASTRIC CANCER
     Dosage: 300 MG/BID/PO
     Route: 048
     Dates: start: 20070227, end: 20070606
  3. CAP VORINOSTAT UNK [Suspect]
     Indication: GASTRIC CANCER
     Dosage: 300 MG/BID/PO
     Route: 048
     Dates: start: 20070215
  4. ALLOPURINOL [Concomitant]

REACTIONS (7)
  - ABDOMINAL PAIN [None]
  - ANOREXIA [None]
  - DEHYDRATION [None]
  - FATIGUE [None]
  - NAUSEA [None]
  - ORAL INTAKE REDUCED [None]
  - VOMITING [None]
